FAERS Safety Report 24234336 (Version 3)
Quarter: 2025Q3

REPORT INFORMATION
  Report Type: Report from Study
  Country: US (occurrence: US)
  Receive Date: 20240821
  Receipt Date: 20250804
  Transmission Date: 20251020
  Serious: Yes (Other)
  Sender: ALEXION PHARMACEUTICALS
  Company Number: 2024A186016

PATIENT
  Age: 56 Year
  Sex: Male
  Weight: 149.69 kg

DRUGS (4)
  1. EXENATIDE [Suspect]
     Active Substance: EXENATIDE
  2. EXENATIDE [Suspect]
     Active Substance: EXENATIDE
  3. HUMALOG [Concomitant]
     Active Substance: INSULIN LISPRO
     Indication: Diabetes mellitus
  4. METFORMIN [Concomitant]
     Active Substance: METFORMIN HYDROCHLORIDE
     Indication: Diabetes mellitus

REACTIONS (1)
  - Medullary thyroid cancer [Unknown]

NARRATIVE: CASE EVENT DATE: 20231201
